FAERS Safety Report 16693086 (Version 1)
Quarter: 2019Q3

REPORT INFORMATION
  Report Type: Spontaneous
  Country: US (occurrence: US)
  Receive Date: 20190625
  Receipt Date: 20190625
  Transmission Date: 20191004
  Serious: Yes (Hospitalization)
  Sender: FDA-Public Use
  Company Number: None

PATIENT
  Sex: Male

DRUGS (8)
  1. GABAPENTIN. [Concomitant]
     Active Substance: GABAPENTIN
  2. MIDODRINE [Concomitant]
     Active Substance: MIDODRINE
  3. NEORAL [Suspect]
     Active Substance: CYCLOSPORINE
     Indication: RENAL TRANSPLANT
     Route: 048
     Dates: start: 20180905
  4. MYCOPHENOLIC, 180MG [Suspect]
     Active Substance: MYCOPHENOLIC ACID
     Indication: RENAL TRANSPLANT
     Route: 048
     Dates: start: 20180727
  5. ULORIC [Concomitant]
     Active Substance: FEBUXOSTAT
  6. CALCITRIOL. [Concomitant]
     Active Substance: CALCITRIOL
  7. PREDNISONE. [Concomitant]
     Active Substance: PREDNISONE
  8. ELIQUIS [Concomitant]
     Active Substance: APIXABAN

REACTIONS (1)
  - Fall [None]
